FAERS Safety Report 6962612-0 (Version None)
Quarter: 2010Q3

REPORT INFORMATION
  Report Type: 
  Country: None (occurrence: None)
  Receive Date: 20100902
  Receipt Date: 20100825
  Transmission Date: 20110219
  Serious: Yes (Hospitalization)
  Sender: FDA-Public Use
  Company Number: US-PFIZER INC-2010107198

PATIENT
  Sex: Male

DRUGS (3)
  1. VIRACEPT [Suspect]
     Indication: HIV INFECTION
     Dosage: 1250 MG, 2X/DAY
     Route: 048
  2. NEXIUM [Concomitant]
  3. COMBIVIR [Concomitant]
     Indication: HIV INFECTION

REACTIONS (1)
  - STAPHYLOCOCCAL INFECTION [None]
